FAERS Safety Report 5264466-X (Version None)
Quarter: 2007Q1

REPORT INFORMATION
  Report Type: 
  Country: None (occurrence: None)
  Receive Date: 20070309
  Receipt Date: 20070228
  Transmission Date: 20070707
  Serious: Yes (Other)
  Sender: FDA-Public Use
  Company Number: 236675

PATIENT
  Sex: Female

DRUGS (13)
  1. LUCENTIS [Suspect]
     Indication: MACULAR DEGENERATION
     Dosage: 0.5 MG, SINGLE, INTRAVITREAL
     Dates: start: 20070202
  2. B-COMPLEX (VITAMIN B COMPLEX) [Concomitant]
  3. BILBERRY (MYRTLLUS) [Concomitant]
  4. LUTEIN (LUTEIN) [Concomitant]
  5. BONIVA (IBANDRONATE) [Concomitant]
  6. COQ-10 (UBIDECARENONE) [Concomitant]
  7. L-CARNITINE (CARNITINE) [Concomitant]
  8. FOSAMAX [Concomitant]
  9. MAGNESIUM SULFATE [Concomitant]
  10. OCUVITE (ASCORBIC ACID, BETA CAROTENE, COPPER NOS, LUTEIN, SELENIUM NO [Concomitant]
  11. OSTEO BI-FLEX (CHONDROITIN SULFATE, GLUCOSAMINE) [Concomitant]
  12. PRAVASTATIN SODIUM [Concomitant]
  13. ZIAC [Concomitant]

REACTIONS (2)
  - COLOUR BLINDNESS [None]
  - VISUAL ACUITY REDUCED [None]
